FAERS Safety Report 5170548-3 (Version None)
Quarter: 2006Q4

REPORT INFORMATION
  Report Type: 
  Country: None (occurrence: None)
  Receive Date: 20061204
  Receipt Date: 20061127
  Transmission Date: 20070319
  Serious: Yes (Life-Threatening, Hospitalization)
  Sender: FDA-Public Use
  Company Number: DEWYE550812APR06

PATIENT
  Age: 73 Year
  Sex: Male

DRUGS (1)
  1. GEMTUZUMAB OZOGAMICIN (GEMTUZUMAB OZOGAMICIN, INJECTION) [Suspect]
     Indication: ACUTE MYELOID LEUKAEMIA
     Dosage: 12 MG
     Dates: start: 20041209, end: 20041209

REACTIONS (3)
  - BRONCHOPULMONARY ASPERGILLOSIS [None]
  - FUNGAL INFECTION [None]
  - PNEUMONIA VIRAL [None]
